FAERS Safety Report 5237102-6 (Version None)
Quarter: 2007Q1

REPORT INFORMATION
  Report Type: 
  Country: None (occurrence: None)
  Receive Date: 20070213
  Receipt Date: 20070201
  Transmission Date: 20070707
  Serious: Yes (Hospitalization)
  Sender: FDA-Public Use
  Company Number: FR-GILEAD-2007-0011170

PATIENT
  Age: 40 Year
  Sex: Female

DRUGS (2)
  1. HEPSERA [Suspect]
     Indication: HEPATITIS B VIRUS
     Route: 048
     Dates: start: 20060201, end: 20060607
  2. ZEFFIX [Concomitant]
     Dates: start: 20060131

REACTIONS (2)
  - DYSPNOEA [None]
  - LACTIC ACIDOSIS [None]
